FAERS Safety Report 6314445-6 (Version None)
Quarter: 2009Q3

REPORT INFORMATION
  Report Type: 
  Country: None (occurrence: None)
  Receive Date: 20090817
  Receipt Date: 20090803
  Transmission Date: 20100115
  Serious: Yes (Hospitalization)
  Sender: FDA-Public Use
  Company Number: IDA-00242

PATIENT
  Age: 50 Year
  Sex: Female

DRUGS (6)
  1. INDERAL [Suspect]
     Dosage: 40 MG DAILY
     Route: 048
  2. METHOTREXATE [Suspect]
     Indication: SYSTEMIC LUPUS ERYTHEMATOSUS
     Dosage: 10 MG
  3. NEXIUM ORAL (ESOMEPRAZOLE MAGNESIUM) [Concomitant]
  4. NORMISON (TEMAZEPAM) [Concomitant]
  5. PREDNISONE TAB [Concomitant]
  6. TAZAC (NIZATIDINE) [Concomitant]

REACTIONS (1)
  - DYSPNOEA [None]
